FAERS Safety Report 8302003-3 (Version None)
Quarter: 2012Q2

REPORT INFORMATION
  Report Type: 
  Country: None (occurrence: None)
  Receive Date: 20120420
  Receipt Date: 20120207
  Transmission Date: 20120825
  Serious: Yes (Hospitalization)
  Sender: FDA-Public Use
  Company Number: US-ROCHE-GNE300577

PATIENT
  Sex: Female

DRUGS (16)
  1. OMALIZUMAB [Suspect]
     Indication: ASTHMA
     Dosage: 225 MG, Q2W
     Route: 058
     Dates: start: 20080701
  2. ZYRTEC [Concomitant]
     Indication: ASTHMA
     Dosage: UNK
     Route: 048
  3. CALCIUM CARBONATE/CHOLECALCIFEROL [Concomitant]
     Indication: VITAMIN SUPPLEMENTATION
     Dosage: UNK
  4. DEXILANT [Concomitant]
     Indication: GASTROOESOPHAGEAL REFLUX DISEASE
  5. ALBUTEROL [Concomitant]
     Indication: ASTHMA
     Dosage: UNK
  6. FLONASE [Concomitant]
     Indication: ASTHMA
     Dosage: UNK
  7. SINGULAIR [Concomitant]
     Indication: ASTHMA
     Dosage: UNK
  8. FORADIL [Concomitant]
     Indication: ASTHMA
     Dosage: UNK
  9. SPIRIVA [Concomitant]
     Indication: ASTHMA
     Dosage: UNK
  10. THEOPHYLLINE [Concomitant]
     Indication: ASTHMA
     Dosage: UNK
  11. CELEXA [Concomitant]
     Indication: MENOPAUSE
  12. ASMANEX TWISTHALER [Concomitant]
     Indication: ASTHMA
     Dosage: UNK
  13. ACIPHEX [Concomitant]
     Indication: GASTROOESOPHAGEAL REFLUX DISEASE
     Dosage: UNK
  14. MULTI-VITAMIN [Concomitant]
     Indication: VITAMIN SUPPLEMENTATION
     Dosage: UNK
  15. VITAMIN D [Concomitant]
     Indication: VITAMIN SUPPLEMENTATION
     Dosage: UNK
  16. TYLENOL (CAPLET) [Concomitant]
     Indication: AFTERBIRTH PAIN

REACTIONS (2)
  - MATERNAL EXPOSURE DURING PREGNANCY [None]
  - PREMATURE RUPTURE OF MEMBRANES [None]
